FAERS Safety Report 4622486-X (Version None)
Quarter: 2005Q1

REPORT INFORMATION
  Report Type: 
  Country: None (occurrence: None)
  Receive Date: 20050324
  Receipt Date: 20050324
  Transmission Date: 20050727
  Serious: Yes (Other)
  Sender: FDA-Public Use
  Company Number: None

PATIENT
  Age: 6 Month
  Sex: Male
  Weight: 6.804 kg

DRUGS (7)
  1. SYNAGIS [Suspect]
     Indication: PREMATURE BABY
     Dosage: 51MG QMO, IM; 56 MG QMO  IM; 57 MG IM QMO.
     Route: 030
     Dates: start: 20050101
  2. SYNAGIS [Suspect]
     Indication: PREMATURE BABY
     Dosage: 51MG QMO, IM; 56 MG QMO  IM; 57 MG IM QMO.
     Route: 030
     Dates: start: 20050201
  3. SYNAGIS [Suspect]
     Indication: PREMATURE BABY
     Dosage: 51MG QMO, IM; 56 MG QMO  IM; 57 MG IM QMO.
     Route: 030
     Dates: start: 20050301
  4. SYNAGIS [Suspect]
  5. SYNAGIS [Suspect]
  6. SYNAGIS [Suspect]
  7. SYNAGIS [Suspect]

REACTIONS (1)
  - RASH [None]
